FAERS Safety Report 17637908 (Version 1)
Quarter: 2020Q2

REPORT INFORMATION
  Report Type: Spontaneous
  Country: US (occurrence: US)
  Receive Date: 20200406
  Receipt Date: 20200406
  Transmission Date: 20200713
  Serious: Yes (Hospitalization)
  Sender: FDA-Public Use
  Company Number: None

PATIENT
  Age: 61 Year
  Sex: Female
  Weight: 45.36 kg

DRUGS (23)
  1. METOCLOPRAMIDE. [Suspect]
     Active Substance: METOCLOPRAMIDE
     Indication: DYSPEPSIA
     Dosage: ?          QUANTITY:30 TABS;OTHER ROUTE:NEVER TAKEN?
     Dates: start: 20200303, end: 20200308
  2. MIRALAX [Concomitant]
     Active Substance: POLYETHYLENE GLYCOL 3350
  3. METOCLOPRAMIDE. [Suspect]
     Active Substance: METOCLOPRAMIDE
     Indication: NAUSEA
     Dosage: ?          QUANTITY:30 TABS;OTHER ROUTE:NEVER TAKEN?
     Dates: start: 20200303, end: 20200308
  4. LASIX 80 MG [Concomitant]
  5. POTASSIUM CL ET=R TAB 20 MEQ [Concomitant]
  6. VIT C 500 MG [Concomitant]
  7. METOCLOPRAMIDE. [Suspect]
     Active Substance: METOCLOPRAMIDE
     Indication: GASTROOESOPHAGEAL REFLUX DISEASE
     Dosage: ?          QUANTITY:30 TABS;OTHER ROUTE:NEVER TAKEN?
     Dates: start: 20200303, end: 20200308
  8. MORPHINE SULFATE ER 15 MG [Concomitant]
  9. OXYCODOENE HYDROCHLORIDE 10 MG [Concomitant]
  10. TYLENOL [Concomitant]
     Active Substance: ACETAMINOPHEN
  11. TRAZODONE HCL 200 MG [Concomitant]
  12. VIT D3 500IU [Concomitant]
  13. MAGNESIUM 500 MG [Concomitant]
  14. BIOTIN 1000 MCG [Concomitant]
  15. SUPER B COMPLEX [Concomitant]
     Active Substance: CYANOCOBALAMIN\DEXPANTHENOL\NIACINAMIDE\PYRIDOXINE HYDROCHLORIDE\RIBOFLAVIN 5^-PHOSPHATE SODIUM\THIAMINE HYDROCHLORIDE\VITAMIN B COMPLEX
  16. TOPAMAX 200 MG [Concomitant]
  17. RESTORIL 30 MG [Concomitant]
  18. CALCIUM 600 MG [Concomitant]
  19. SOMA [Concomitant]
     Active Substance: CARISOPRODOL
  20. CRANBERRY 8400 MG [Concomitant]
  21. DAIRY RELIEF [Concomitant]
  22. MORPHINE SULFATE ER 30 MG [Concomitant]
  23. DICLOFENAC TAB 75 MG [Concomitant]

REACTIONS (9)
  - Anxiety [None]
  - Agitation [None]
  - Vomiting [None]
  - Nausea [None]
  - Diarrhoea [None]
  - Hostility [None]
  - Aggression [None]
  - Dehydration [None]
  - Irritability [None]
